FAERS Safety Report 20168970 (Version 2)
Quarter: 2021Q4

REPORT INFORMATION
  Report Type: Report from Study
  Country: DE (occurrence: DE)
  Receive Date: 20211210
  Receipt Date: 20211221
  Transmission Date: 20220303
  Serious: Yes (Other)
  Sender: FDA-Public Use
  Company Number: DE-UCBSA-2021057434

PATIENT
  Sex: Female

DRUGS (1)
  1. CERTOLIZUMAB PEGOL [Suspect]
     Active Substance: CERTOLIZUMAB PEGOL
     Indication: Axial spondyloarthritis
     Dosage: UNK

REACTIONS (3)
  - Acquired corneal dystrophy [Unknown]
  - Influenza like illness [Unknown]
  - Weight increased [Unknown]

NARRATIVE: CASE EVENT DATE: 20200715
